FAERS Safety Report 10255901 (Version 1)
Quarter: 2014Q2

REPORT INFORMATION
  Report Type: Spontaneous
  Country: US (occurrence: None)
  Receive Date: 20140530
  Receipt Date: 20140530
  Transmission Date: 20141212
  Serious: Yes (Other)
  Sender: FDA-Public Use
  Company Number: 2013037382

PATIENT
  Age: 39 Year
  Sex: Female
  Weight: 51.71 kg

DRUGS (13)
  1. HIZENTRA (IMMUNOGLOBULIN HUMAN NORMAL) [Suspect]
     Indication: HYPOGAMMAGLOBULINAEMIA
     Dosage: 1 G, 1X/WEEK, OVER 1-2 HOURS SUBCUTANEOUS
     Route: 058
  2. HIZENTRA (IMMUNOGLOBULIN HUMAN NORMAL) [Suspect]
     Indication: HYPER IGM SYNDROME
     Dosage: 1 G, 1X/WEEK, OVER 1-2 HOURS SUBCUTANEOUS
     Route: 058
  3. DIPHENHYDRAMINE (DIPHENHYDRAMINE) [Concomitant]
  4. LIDOCAINE/PRILOCAINE (EMLA) [Concomitant]
  5. EPI PEN (EPINEPHRINE HYDROCHLORIDE) [Concomitant]
  6. LMX (LIDOCAINE HYDROCHLORIDE) [Concomitant]
  7. CENTRUM MULTIVITAMINE (CENTRUM) [Concomitant]
  8. TOPIRAMATE (TOPIRAMATE) [Concomitant]
  9. FLUCONAZOLE (FLUCONAZOLE) [Concomitant]
  10. VALTREX (VALACICLOVIR HYDROCHLORIDE) [Concomitant]
  11. FERROUS SULFATE (FERROUS SULFATE) [Concomitant]
  12. LEVAQUIN (LEVOFLOXACIN) [Concomitant]
  13. ALBUTEROL HFA (SALBUTAMOL) [Concomitant]

REACTIONS (1)
  - Nausea [None]
